FAERS Safety Report 8006963-X (Version None)
Quarter: 2011Q4

REPORT INFORMATION
  Report Type: 
  Country: None (occurrence: None)
  Receive Date: 20111219
  Receipt Date: 20111209
  Transmission Date: 20120403
  Serious: Yes (Other)
  Sender: FDA-Public Use
  Company Number: AEDEU201100310

PATIENT
  Age: 70 Year
  Sex: Female

DRUGS (4)
  1. ENAKETA COMP [Concomitant]
  2. GAMUNEX [Suspect]
  3. GAMUNEX [Suspect]
     Indication: CHRONIC INFLAMMATORY DEMYELINATING POLYRADICULONEUROPATHY
     Dosage: 12 GM; QM; IV
     Route: 042
     Dates: start: 20110114
  4. MOTODURU [Concomitant]

REACTIONS (2)
  - THROMBOPHLEBITIS SUPERFICIAL [None]
  - IMMOBILE [None]
